FAERS Safety Report 21451236 (Version 1)
Quarter: 2022Q4

REPORT INFORMATION
  Report Type: Spontaneous
  Country: US (occurrence: None)
  Receive Date: 20221012
  Receipt Date: 20221012
  Transmission Date: 20230112
  Serious: Yes (Disabling, Other)
  Sender: FDA-Public Use
  Company Number: None

PATIENT
  Age: 64 Year
  Sex: Male
  Weight: 68.85 kg

DRUGS (1)
  1. AYVAKIT [Suspect]
     Active Substance: AVAPRITINIB
     Indication: Gastrointestinal stromal tumour
     Dates: start: 20220316, end: 20220821

REACTIONS (4)
  - Muscle twitching [None]
  - Hypoaesthesia [None]
  - Central nervous system lesion [None]
  - Haemorrhage [None]

NARRATIVE: CASE EVENT DATE: 20220820
